FAERS Safety Report 12738681 (Version 2)
Quarter: 2016Q4

REPORT INFORMATION
  Report Type: Spontaneous
  Country: US (occurrence: US)
  Receive Date: 20160912
  Receipt Date: 20161117
  Transmission Date: 20170207
  Serious: No
  Sender: FDA-Public Use
  Company Number: US-SA-2016SA148811

PATIENT
  Age: 75 Year
  Sex: Female

DRUGS (5)
  1. LANTUS SOLOSTAR [Concomitant]
     Active Substance: INSULIN GLARGINE
  2. SOLOSTAR [Suspect]
     Active Substance: DEVICE
     Indication: TYPE 1 DIABETES MELLITUS
     Dates: start: 2015
  3. TOUJEO [Suspect]
     Active Substance: INSULIN GLARGINE
     Indication: TYPE 1 DIABETES MELLITUS
     Dosage: DOSE:26 UNIT(S)
     Route: 065
     Dates: start: 2015
  4. LANTUS [Concomitant]
     Active Substance: INSULIN GLARGINE
  5. SOLOSTAR [Concomitant]
     Active Substance: DEVICE

REACTIONS (4)
  - Hyperhidrosis [Unknown]
  - Device issue [Unknown]
  - Blood glucose fluctuation [Unknown]
  - Hypoglycaemia [Unknown]
